FAERS Safety Report 7487640-0 (Version None)
Quarter: 2011Q2

REPORT INFORMATION
  Report Type: 
  Country: None (occurrence: None)
  Receive Date: 20110518
  Receipt Date: 20091130
  Transmission Date: 20111010
  Serious: Yes (Death, Other)
  Sender: FDA-Public Use
  Company Number: US-BAYER-200941255NA

PATIENT
  Age: 71 Year
  Sex: Female
  Weight: 135.15 kg

DRUGS (16)
  1. CEFTRIAXONE [Concomitant]
     Dosage: 2GMS
     Route: 042
     Dates: start: 20050908
  2. BACTRIM DS [Concomitant]
     Dosage: 1 BID X 3DAYS
     Route: 048
     Dates: start: 20050909
  3. ASPIRIN [Concomitant]
     Dosage: 325MG/DAILY, LONG-TERM USE
     Route: 048
  4. TRASYLOL [Suspect]
     Indication: AORTIC VALVE REPLACEMENT
     Route: 042
     Dates: start: 20051001
  5. ALDACTONE [Concomitant]
     Dosage: 25MG/DAILY
     Route: 048
     Dates: start: 20050905
  6. LASIX [Concomitant]
     Dosage: 80 MG/TWICE PER DAY, LONG-TERM USE
     Route: 048
  7. METOLAZONE [Concomitant]
     Dosage: 2.5MG/DAILY, LONG-TERM USE
     Route: 048
  8. HEPARIN [Concomitant]
     Dosage: 1000UNITS/TID
     Route: 042
     Dates: start: 20051019
  9. HYZAAR [Concomitant]
     Dosage: 50/12.5MG 2TABS DAILY
     Route: 048
     Dates: start: 20050905
  10. LEVAQUIN [Concomitant]
     Dosage: 500MG/DAILY
     Route: 048
     Dates: start: 20051022
  11. ADVIL LIQUI-GELS [Concomitant]
     Route: 048
  12. RED BLOOD CELLS [Concomitant]
     Dosage: 3 UNITS
     Route: 042
     Dates: start: 20051019, end: 20051020
  13. NITROGLYCERIN [Concomitant]
     Dosage: 0.4MG/DAILY, LONG-TERM USE
     Route: 048
  14. COREG [Concomitant]
     Dosage: 6.25MG/TWICE PER DAY
     Route: 048
  15. HYDRALAZINE HCL [Concomitant]
     Dosage: 20MG
     Route: 042
     Dates: start: 20051021
  16. NATRECOR [Concomitant]
     Dosage: .01MCG/KG/MIN
     Route: 042
     Dates: start: 20050904

REACTIONS (11)
  - RENAL INJURY [None]
  - FEAR [None]
  - RENAL FAILURE [None]
  - MULTI-ORGAN FAILURE [None]
  - EMOTIONAL DISTRESS [None]
  - UNEVALUABLE EVENT [None]
  - PAIN [None]
  - RENAL IMPAIRMENT [None]
  - STRESS [None]
  - ANXIETY [None]
  - DEATH [None]
